FAERS Safety Report 5805576-5 (Version None)
Quarter: 2008Q3

REPORT INFORMATION
  Report Type: 
  Country: None (occurrence: None)
  Receive Date: 20080708
  Receipt Date: 20080708
  Transmission Date: 20090109
  Serious: Yes (Life-Threatening, Other)
  Sender: FDA-Public Use
  Company Number: None

PATIENT
  Age: 54 Year
  Sex: Female
  Weight: 58.9676 kg

DRUGS (2)
  1. METHOTREXATE [Suspect]
     Indication: PSORIASIS
     Dosage: 15MG Q WEEK PO
     Route: 048
     Dates: start: 20040123, end: 20061230
  2. METHOTREXATE [Suspect]
     Indication: PSORIATIC ARTHROPATHY
     Dosage: 15MG Q WEEK PO
     Route: 048
     Dates: start: 20040123, end: 20061230

REACTIONS (1)
  - BREAST CANCER FEMALE [None]
